FAERS Safety Report 4536355-7 (Version None)
Quarter: 2004Q4

REPORT INFORMATION
  Report Type: 
  Country: None (occurrence: None)
  Receive Date: 20041220
  Receipt Date: 20041206
  Transmission Date: 20050328
  Serious: Yes (Other)
  Sender: FDA-Public Use
  Company Number: 2004105770

PATIENT
  Sex: Female

DRUGS (3)
  1. DILANTIN KAPSEAL [Suspect]
     Indication: CEREBROVASCULAR ACCIDENT
     Dosage: 300 MG (100 MG), ORAL
     Route: 048
     Dates: start: 20040101, end: 20041101
  2. DILANTIN KAPSEAL [Suspect]
     Indication: CONVULSION
     Dosage: 300 MG (100 MG), ORAL
     Route: 048
     Dates: start: 20040101, end: 20041101
  3. NORVASC [Suspect]
     Indication: ILL-DEFINED DISORDER
     Dates: start: 20040101

REACTIONS (5)
  - ABASIA [None]
  - APHASIA [None]
  - DRUG TOXICITY [None]
  - GENERAL PHYSICAL HEALTH DETERIORATION [None]
  - MENTAL IMPAIRMENT [None]
